FAERS Safety Report 5873347-X (Version None)
Quarter: 2008Q3

REPORT INFORMATION
  Report Type: 
  Country: None (occurrence: None)
  Receive Date: 20080829
  Receipt Date: 20080815
  Transmission Date: 20090109
  Serious: Yes (Other)
  Sender: FDA-Public Use
  Company Number: 2008S1015209

PATIENT
  Age: 40 Year
  Sex: Female

DRUGS (7)
  1. LOPERAMIDE HYDROCHLORIDE [Suspect]
     Indication: DIARRHOEA
     Dosage: 2 MG; ORAL
     Route: 048
     Dates: start: 20080718, end: 20080718
  2. SIMVASTATIN (CON.) [Concomitant]
  3. MULTIVITAMIN /00831701/ (CON.) [Concomitant]
  4. GLUCOSAMINE (CON.) [Concomitant]
  5. OMEGA 3 (CON.) [Concomitant]
  6. MEFENAMIC ACID (PREV.) [Concomitant]
  7. TRANEXAMIC (PREV.) [Concomitant]

REACTIONS (3)
  - DIZZINESS [None]
  - FATIGUE [None]
  - HALLUCINATION [None]
